FAERS Safety Report 6075922-9 (Version None)
Quarter: 2009Q1

REPORT INFORMATION
  Report Type: 
  Country: None (occurrence: None)
  Receive Date: 20090212
  Receipt Date: 20090209
  Transmission Date: 20090719
  Serious: Yes (Death)
  Sender: FDA-Public Use
  Company Number: JP-BRISTOL-MYERS SQUIBB COMPANY-14479281

PATIENT
  Age: 43 Year
  Sex: Male
  Weight: 57 kg

DRUGS (5)
  1. ERBITUX [Suspect]
     Indication: RECTAL CANCER
     Dosage: IST INFUSION: 30OCT08 (660 MG/BODY INTRAVENOUSLY ONCE WEEKLY).
     Route: 042
     Dates: start: 20081030, end: 20081030
  2. IRINOTECAN HCL [Concomitant]
     Indication: RECTAL CANCER
     Dosage: THERAPY DATES: 18DEC08-18DEC08 (160MG).
     Route: 042
     Dates: start: 20081030, end: 20081113
  3. CHLOR-TRIMETON [Concomitant]
     Indication: PREMEDICATION
     Route: 042
     Dates: start: 20081030, end: 20081225
  4. DEXART [Concomitant]
     Indication: PREMEDICATION
     Route: 042
     Dates: start: 20081030, end: 20081225
  5. KYTRIL [Concomitant]
     Indication: PREMEDICATION
     Route: 042
     Dates: start: 20081030, end: 20081218

REACTIONS (3)
  - DIARRHOEA [None]
  - DISEASE PROGRESSION [None]
  - HEPATIC FAILURE [None]
